FAERS Safety Report 8045347-5 (Version None)
Quarter: 2012Q1

REPORT INFORMATION
  Report Type: 
  Country: None (occurrence: None)
  Receive Date: 20120111
  Receipt Date: 20120111
  Transmission Date: 20120608
  Serious: Yes (Hospitalization)
  Sender: FDA-Public Use
  Company Number: None

PATIENT
  Age: 64 Year
  Weight: 59.8 kg

DRUGS (1)
  1. DABIGATRAN 150 MG [Suspect]
     Indication: PULMONARY EMBOLISM
     Dosage: 150 MG TWICE DAILY ORAL
     Route: 048
     Dates: start: 20110722, end: 20110807

REACTIONS (3)
  - HAEMOGLOBIN DECREASED [None]
  - HAEMATOCRIT DECREASED [None]
  - LOWER GASTROINTESTINAL HAEMORRHAGE [None]
